FAERS Safety Report 8104069-2 (Version None)
Quarter: 2012Q1

REPORT INFORMATION
  Report Type: 
  Country: None (occurrence: None)
  Receive Date: 20120201
  Receipt Date: 20120123
  Transmission Date: 20120608
  Serious: Yes (Hospitalization, Other)
  Sender: FDA-Public Use
  Company Number: US-PFIZER INC-2009171787

PATIENT
  Sex: Female

DRUGS (14)
  1. MULTI-VITAMINS [Concomitant]
     Dosage: 1 TABLET, DAILY
     Route: 048
  2. MIDRIN [Concomitant]
     Indication: MIGRAINE
     Dosage: 2 MG, AS NEEDED
     Route: 048
  3. PLENDIL [Concomitant]
     Dosage: 5MG DAILY
  4. DILANTIN [Suspect]
     Dosage: 50MG
  5. FISH OIL [Concomitant]
     Dosage: 1 TABLET DAILY
     Route: 048
  6. ALBUTEROL [Concomitant]
     Dosage: 2 INHALATION AS NEEDED
     Route: 055
  7. DILANTIN [Suspect]
     Indication: PROPHYLAXIS
     Dosage: 100 MG, 3X/DAY
     Route: 048
     Dates: start: 20070419, end: 20070510
  8. DEXAMETHASONE [Concomitant]
     Indication: PROPHYLAXIS
     Dosage: UNK
     Dates: start: 20070418, end: 20070504
  9. BENICAR [Concomitant]
     Dosage: 20MG, DAILY
     Route: 048
  10. AK-PENTOLATE [Concomitant]
     Dosage: 1 DROP TWO TIMES DAILY
     Route: 047
  11. ATENOLOL AND CHLORTHALIDONE [Concomitant]
     Dosage: 100MG, DAILY
     Route: 048
  12. DIAZEPAM [Concomitant]
     Dosage: 2MG, TWICE A DAY AS NEEDED
     Route: 048
  13. PRED FORTE [Concomitant]
     Dosage: 1 DROP FOUR TIMES A DAY
     Route: 047
  14. DARVOCET-N 50 [Concomitant]
     Indication: PAIN
     Dosage: 1 TABLET EVERY 4 HOURS AS NEEDED
     Route: 048

REACTIONS (1)
  - STEVENS-JOHNSON SYNDROME [None]
